FAERS Safety Report 7100675-2 (Version None)
Quarter: 2010Q4

REPORT INFORMATION
  Report Type: 
  Country: None (occurrence: None)
  Receive Date: 20101113
  Receipt Date: 20100323
  Transmission Date: 20110411
  Serious: No
  Sender: FDA-Public Use
  Company Number: US-ALLERGAN-1002401US

PATIENT
  Age: 67 Year
  Sex: Female
  Weight: 53.515 kg

DRUGS (3)
  1. BOTOX COSMETIC [Suspect]
     Indication: SKIN WRINKLING
     Dosage: UNK
     Route: 030
     Dates: start: 20091215, end: 20091215
  2. BOTOX COSMETIC [Suspect]
  3. SYNTHROID [Concomitant]

REACTIONS (4)
  - COUGH [None]
  - HYPERSENSITIVITY [None]
  - INJECTION SITE HAEMATOMA [None]
  - THERAPEUTIC RESPONSE DECREASED [None]
